FAERS Safety Report 24907236 (Version 1)
Quarter: 2025Q1

REPORT INFORMATION
  Report Type: Spontaneous
  Country: US (occurrence: US)
  Receive Date: 20250130
  Receipt Date: 20250130
  Transmission Date: 20250409
  Serious: Yes (Hospitalization, Other)
  Sender: PRINSTON PHARMACEUTICAL
  Company Number: US-PRINSTON PHARMACEUTICAL INC.-2025PRN00023

PATIENT
  Age: 38 Week
  Sex: Female

DRUGS (5)
  1. CLONAZEPAM [Suspect]
     Active Substance: CLONAZEPAM
  2. FLUOXETINE [Suspect]
     Active Substance: FLUOXETINE HYDROCHLORIDE
  3. QUETIAPINE [Suspect]
     Active Substance: QUETIAPINE
  4. INSULIN NOS [Suspect]
     Active Substance: INSULIN NOS
  5. ZONISAMIDE [Suspect]
     Active Substance: ZONISAMIDE

REACTIONS (2)
  - Neurological symptom [Unknown]
  - Foetal exposure during pregnancy [Unknown]
